FAERS Safety Report 6303780-3 (Version None)
Quarter: 2009Q3

REPORT INFORMATION
  Report Type: 
  Country: None (occurrence: None)
  Receive Date: 20090805
  Receipt Date: 20090723
  Transmission Date: 20100115
  Serious: Yes (Other)
  Sender: FDA-Public Use
  Company Number: US-1170363

PATIENT
  Age: 81 Year
  Sex: Female
  Weight: 55.7924 kg

DRUGS (15)
  1. ISOPTO CARBACHO 3 % OPHTHALMIC SOLUTION [Suspect]
     Indication: INTRAOCULAR PRESSURE DECREASED
     Dosage: (1 GTT IMMEDIATELY POST-OP OPHTHALMIC)
     Route: 047
     Dates: start: 20090506, end: 20090506
  2. MYDRIACYL [Concomitant]
  3. CYCLOGYL [Concomitant]
  4. ACULAR [Concomitant]
  5. AK-DILATE [Concomitant]
  6. VERSED [Concomitant]
  7. LIDOCAINE HYDROCHLORIDE [Concomitant]
  8. BSS [Concomitant]
  9. FENTANYL [Concomitant]
  10. XYLOCAINE [Concomitant]
  11. EPINEPHRINE [Concomitant]
  12. DUOVISC [Concomitant]
  13. PROPOFOL [Concomitant]
  14. ZYMAR [Concomitant]
  15. TETRACAINE HYDROCHLORIDE [Concomitant]

REACTIONS (3)
  - BLOOD PRESSURE DECREASED [None]
  - HEART RATE DECREASED [None]
  - NAUSEA [None]
